FAERS Safety Report 19453537 (Version 1)
Quarter: 2021Q2

REPORT INFORMATION
  Report Type: Spontaneous
  Country: CN (occurrence: CN)
  Receive Date: 20210623
  Receipt Date: 20210623
  Transmission Date: 20210717
  Serious: Yes (Life-Threatening, Other)
  Sender: FDA-Public Use
  Company Number: CN-PFIZER INC-2021703193

PATIENT
  Age: 73 Year
  Sex: Female
  Weight: 52 kg

DRUGS (1)
  1. LYRICA [Suspect]
     Active Substance: PREGABALIN
     Indication: PAIN IN EXTREMITY
     Dosage: 75 MG, 2X/DAY
     Route: 048
     Dates: start: 20210218, end: 20210302

REACTIONS (4)
  - Depressed level of consciousness [Recovering/Resolving]
  - Blood pressure immeasurable [Recovering/Resolving]
  - Ventricular fibrillation [Recovering/Resolving]
  - Pulse absent [Recovering/Resolving]

NARRATIVE: CASE EVENT DATE: 20210302
